FAERS Safety Report 15214524 (Version 1)
Quarter: 2018Q3

REPORT INFORMATION
  Report Type: Spontaneous
  Country: US (occurrence: US)
  Receive Date: 20180730
  Receipt Date: 20180730
  Transmission Date: 20181010
  Serious: Yes (Other)
  Sender: FDA-Public Use
  Company Number: US-BIOGEN-2018BI00585857

PATIENT
  Age: 32 Year
  Sex: Female

DRUGS (5)
  1. AVONEX [Suspect]
     Active Substance: INTERFERON BETA-1A
     Dosage: ADMINISTERED IM WEEKLY: 1/4 DOSE ON WK 1, 1/2 DOSE ON WK 2, 3/4 DOSE ON WK 3, FULL DOSE ON WK 4
     Route: 030
  2. AVONEX [Suspect]
     Active Substance: INTERFERON BETA-1A
     Dosage: ADMINISTERED IM WEEKLY: 1/4 DOSE ON WK 1, 1/2 DOSE ON WK 2, 3/4 DOSE ON WK 3, FULL DOSE ON WK 4
     Route: 030
  3. AVONEX [Suspect]
     Active Substance: INTERFERON BETA-1A
     Dosage: ADMINISTERED IM WEEKLY: 1/4 DOSE ON WK 1, 1/2 DOSE ON WK 2, 3/4 DOSE ON WK 3, FULL DOSE ON WK 4
     Route: 030
     Dates: start: 20180516
  4. AVONEX [Suspect]
     Active Substance: INTERFERON BETA-1A
     Dosage: ADMINISTERED IM WEEKLY: 1/4 DOSE ON WK 1, 1/2 DOSE ON WK 2, 3/4 DOSE ON WK 3, FULL DOSE ON WK 4
     Route: 030
  5. AVONEX [Suspect]
     Active Substance: INTERFERON BETA-1A
     Indication: MULTIPLE SCLEROSIS
     Route: 030
     Dates: start: 20160223

REACTIONS (2)
  - Caesarean section [Recovered/Resolved]
  - Maternal exposure during pregnancy [Recovered/Resolved]

NARRATIVE: CASE EVENT DATE: 20180212
